FAERS Safety Report 14909042 (Version 1)
Quarter: 2018Q2

REPORT INFORMATION
  Report Type: Spontaneous
  Country: US (occurrence: US)
  Receive Date: 20180517
  Receipt Date: 20180517
  Transmission Date: 20180711
  Serious: Yes (Other)
  Sender: FDA-Public Use
  Company Number: PHHY2018US006413

PATIENT
  Age: 55 Year
  Sex: Female

DRUGS (1)
  1. VALACICLOVIR [Suspect]
     Active Substance: VALACYCLOVIR HYDROCHLORIDE
     Indication: VARICELLA ZOSTER VIRUS INFECTION
     Dosage: 1000 MG, TID
     Route: 065

REACTIONS (3)
  - Delusion [Recovering/Resolving]
  - Cotard^s syndrome [Recovering/Resolving]
  - Toxicity to various agents [Unknown]
